FAERS Safety Report 7468227-2 (Version None)
Quarter: 2011Q2

REPORT INFORMATION
  Report Type: 
  Country: None (occurrence: None)
  Receive Date: 20110509
  Receipt Date: 20110421
  Transmission Date: 20111010
  Serious: No
  Sender: FDA-Public Use
  Company Number: US-B.I. PHARMACEUTICALS,INC./RIDGEFIELD-2011-BP-02954BP

PATIENT
  Sex: Male

DRUGS (12)
  1. SERTRALINE HYDROCHLORIDE [Concomitant]
     Indication: ANXIETY
  2. LORAZEPAM [Concomitant]
     Indication: ANXIETY
     Dosage: 2 MG
  3. PLAVIX [Concomitant]
     Dosage: 75 MG
  4. ADVAIR DISKUS 100/50 [Concomitant]
     Indication: CHRONIC OBSTRUCTIVE PULMONARY DISEASE
  5. ZOLPIDEM [Concomitant]
     Indication: SLEEP DISORDER
     Dosage: 10 MG
  6. TRAMADOL HCL [Concomitant]
  7. BENAZEPRIL HYDROCHLORIDE [Concomitant]
     Indication: HYPERTENSION
     Dosage: 10 MG
  8. ALENDRONATE SOCIUM [Concomitant]
  9. SPIRIVA [Suspect]
     Indication: CHRONIC OBSTRUCTIVE PULMONARY DISEASE
     Dosage: 18 MCG
     Route: 055
     Dates: start: 20070101
  10. AMLODIPINE BESYLATE [Concomitant]
     Indication: HYPERTENSION
     Dosage: 5 MG
  11. ATIVAN [Concomitant]
     Indication: ANXIETY
     Dosage: 2 MG
  12. PROAIR HFA [Concomitant]
     Indication: CHRONIC OBSTRUCTIVE PULMONARY DISEASE

REACTIONS (4)
  - DRUG INEFFECTIVE [None]
  - PERIPHERAL ARTERIAL OCCLUSIVE DISEASE [None]
  - DYSPNOEA [None]
  - PNEUMONIA [None]
